FAERS Safety Report 7507524-9 (Version None)
Quarter: 2011Q2

REPORT INFORMATION
  Report Type: 
  Country: None (occurrence: None)
  Receive Date: 20110526
  Receipt Date: 20101216
  Transmission Date: 20111010
  Serious: No
  Sender: FDA-Public Use
  Company Number: US-MYLANLABS-2010S1023072

PATIENT
  Age: 58 Year
  Sex: Female

DRUGS (2)
  1. PRISTIQ [Concomitant]
  2. ZOLPIDEM TARTRATE [Suspect]
     Indication: INSOMNIA
     Route: 048
     Dates: start: 20101206

REACTIONS (3)
  - HANGOVER [None]
  - DRUG EFFECT DECREASED [None]
  - INSOMNIA [None]
